FAERS Safety Report 6655265-2 (Version None)
Quarter: 2010Q1

REPORT INFORMATION
  Report Type: 
  Country: None (occurrence: None)
  Receive Date: 20100329
  Receipt Date: 20100322
  Transmission Date: 20100710
  Serious: Yes (Life-Threatening)
  Sender: FDA-Public Use
  Company Number: CZ-BRISTOL-MYERS SQUIBB COMPANY-15030471

PATIENT
  Age: 39 Year
  Sex: Female

DRUGS (2)
  1. MAXIPIME [Suspect]
     Route: 042
     Dates: start: 20100224, end: 20100225
  2. PROSTAPHLIN INJ 1 G [Suspect]
     Indication: SKIN INFECTION
     Route: 042
     Dates: start: 20100220, end: 20100224

REACTIONS (2)
  - RASH [None]
  - STEVENS-JOHNSON SYNDROME [None]
